FAERS Safety Report 7444125-5 (Version None)
Quarter: 2011Q2

REPORT INFORMATION
  Report Type: 
  Country: None (occurrence: None)
  Receive Date: 20110419
  Receipt Date: 20110415
  Transmission Date: 20111010
  Serious: Yes (Life-Threatening, Hospitalization)
  Sender: FDA-Public Use
  Company Number: 2011SP017094

PATIENT
  Sex: Male

DRUGS (3)
  1. PEG-INTRON [Suspect]
     Indication: HEPATITIS C
     Dosage: SC
     Route: 058
  2. REBETOL [Suspect]
     Indication: HEPATITIS C
     Dosage: PO
     Route: 048
  3. FERON (INTERFERON BETA) (INTERFERON BETA) [Suspect]
     Indication: HEPATITIS C
     Dosage: IV
     Route: 042

REACTIONS (3)
  - SUBDURAL HAEMATOMA [None]
  - DIZZINESS [None]
  - FALL [None]
